FAERS Safety Report 7162074-7 (Version None)
Quarter: 2010Q4

REPORT INFORMATION
  Report Type: 
  Country: None (occurrence: None)
  Receive Date: 20101215
  Receipt Date: 20090803
  Transmission Date: 20110411
  Serious: Yes (Other)
  Sender: FDA-Public Use
  Company Number: FR-PFIZER INC-2009249172

PATIENT
  Age: 25 Year

DRUGS (1)
  1. LYRICA [Suspect]
     Indication: PHANTOM PAIN
     Dosage: 300 MG, 2X/DAY
     Route: 048
     Dates: start: 20090101

REACTIONS (2)
  - BRIEF PSYCHOTIC DISORDER WITH MARKED STRESSORS [None]
  - WEIGHT DECREASED [None]
